FAERS Safety Report 6064593-3 (Version None)
Quarter: 2009Q1

REPORT INFORMATION
  Report Type: 
  Country: None (occurrence: None)
  Receive Date: 20090204
  Receipt Date: 20090129
  Transmission Date: 20090719
  Serious: Yes (Other)
  Sender: FDA-Public Use
  Company Number: B0556441A

PATIENT
  Sex: Male

DRUGS (2)
  1. REQUIP [Suspect]
     Indication: PARKINSON'S DISEASE
     Route: 065
  2. NEUPRO [Concomitant]
     Indication: PARKINSON'S DISEASE
     Route: 065

REACTIONS (8)
  - BONE DISORDER [None]
  - CHRONIC SINUSITIS [None]
  - COMPUTERISED TOMOGRAM ABNORMAL [None]
  - HALLUCINATION [None]
  - MENINGIOMA [None]
  - MOOD ALTERED [None]
  - MUSCLE SPASMS [None]
  - SINUSITIS [None]
